FAERS Safety Report 18622303 (Version 1)
Quarter: 2020Q4

REPORT INFORMATION
  Report Type: Spontaneous
  Country: US (occurrence: US)
  Receive Date: 20201215
  Receipt Date: 20201215
  Transmission Date: 20210114
  Serious: Yes (Other)
  Sender: FDA-Public Use
  Company Number: None

PATIENT
  Age: 39 Year
  Sex: Female
  Weight: 112.5 kg

DRUGS (1)
  1. IVERMECTIN. [Suspect]
     Active Substance: IVERMECTIN
     Indication: SARS-COV-2 TEST FALSE POSITIVE
     Dates: start: 20201211, end: 20201213

REACTIONS (2)
  - Sinusitis [None]
  - SARS-CoV-2 test false positive [None]

NARRATIVE: CASE EVENT DATE: 20201211
